FAERS Safety Report 6863070-7 (Version None)
Quarter: 2010Q3

REPORT INFORMATION
  Report Type: 
  Country: None (occurrence: None)
  Receive Date: 20100721
  Receipt Date: 20100720
  Transmission Date: 20110219
  Serious: Yes (Other)
  Sender: FDA-Public Use
  Company Number: US-B.I. PHARMACEUTICALS,INC./RIDGEFIELD-2009-BP-14790BP

PATIENT
  Sex: Female

DRUGS (30)
  1. MIRAPEX [Suspect]
     Indication: RESTLESS LEGS SYNDROME
     Dates: start: 20000101
  2. BACLOFEN TABLET [Concomitant]
     Indication: MUSCLE SPASTICITY
  3. FLOMAX [Concomitant]
     Indication: URINARY TRACT DISORDER
     Route: 048
     Dates: end: 20070301
  4. PAXIL [Concomitant]
     Indication: OBSESSIVE-COMPULSIVE DISORDER
     Dosage: 10 MG
  5. BETASERON [Concomitant]
  6. DETROL LA [Concomitant]
  7. DDAVP SPRAY .001% [Concomitant]
     Dates: end: 20070301
  8. PROMETHAZINE SYRUP [Concomitant]
  9. CELEXA [Concomitant]
  10. EXTRA STRENGTH TYLENOL [Concomitant]
  11. CENTRUM VITAMIN [Concomitant]
  12. VITAMIN C [Concomitant]
  13. TRAZODONE HCL [Concomitant]
  14. LEXAPRO [Concomitant]
  15. ADVIL LIQUI-GELS [Concomitant]
  16. ALLOVERT [Concomitant]
     Indication: HYPERSENSITIVITY
  17. FASTIN [Concomitant]
  18. EFFEXOR XM [Concomitant]
  19. BEXTRA [Concomitant]
  20. VIVACTIL [Concomitant]
     Dates: end: 20070301
  21. REMINYL [Concomitant]
     Indication: MEMORY IMPAIRMENT
  22. VITAMIN B-12 [Concomitant]
     Route: 058
  23. PHENTERMINE [Concomitant]
  24. FOLIC ACID [Concomitant]
     Dates: start: 20050101
  25. VESICARE [Concomitant]
     Dates: start: 20050101, end: 20070301
  26. NAMENDA [Concomitant]
     Dates: start: 20050101, end: 20070301
  27. NEURONTIN [Concomitant]
     Dates: end: 20070301
  28. SOLU-MEDROL [Concomitant]
     Route: 042
  29. TOPAMAX [Concomitant]
  30. ABILIFY [Concomitant]

REACTIONS (9)
  - ANXIETY [None]
  - ASTHENIA [None]
  - COMPULSIVE SHOPPING [None]
  - CONVULSION [None]
  - DEPRESSION [None]
  - FATIGUE [None]
  - PAIN [None]
  - PATHOLOGICAL GAMBLING [None]
  - SUICIDAL IDEATION [None]
